FAERS Safety Report 6050949-1 (Version None)
Quarter: 2009Q1

REPORT INFORMATION
  Report Type: 
  Country: None (occurrence: None)
  Receive Date: 20090126
  Receipt Date: 20080811
  Transmission Date: 20090719
  Serious: No
  Sender: FDA-Public Use
  Company Number: US-TYCO HEALTHCARE/MALLINCKRODT-T200801314

PATIENT

DRUGS (5)
  1. OPTIRAY 300 [Suspect]
     Indication: COMPUTERISED TOMOGRAM ABDOMEN
     Dosage: 92 ML (CC), SINGLE
     Route: 042
     Dates: start: 20071101, end: 20071101
  2. CHEETAH [Suspect]
     Indication: COMPUTERISED TOMOGRAM ABDOMEN
     Dosage: UNK, SINGLE
     Route: 048
     Dates: start: 20071101, end: 20071101
  3. BENTYL [Concomitant]
     Indication: DRUG USE FOR UNKNOWN INDICATION
     Route: 048
  4. ZANTAC                             /00550802/ [Concomitant]
     Indication: GASTROOESOPHAGEAL REFLUX DISEASE
     Route: 048
  5. EYE DROPS [Concomitant]
     Indication: HYPERSENSITIVITY
     Dosage: UNK, QD
     Route: 031

REACTIONS (8)
  - ANOREXIA [None]
  - BEDRIDDEN [None]
  - BURNING SENSATION [None]
  - DIZZINESS [None]
  - FEELING ABNORMAL [None]
  - NAUSEA [None]
  - THIRST [None]
  - WEIGHT DECREASED [None]
